FAERS Safety Report 6367088-2 (Version None)
Quarter: 2009Q3

REPORT INFORMATION
  Report Type: 
  Country: None (occurrence: None)
  Receive Date: 20090921
  Receipt Date: 20090324
  Transmission Date: 20100115
  Serious: No
  Sender: FDA-Public Use
  Company Number: US-BAYER-200916586NA

PATIENT
  Age: 38 Year
  Sex: Female
  Weight: 107 kg

DRUGS (2)
  1. MIRENA [Suspect]
     Indication: MENSTRUATION IRREGULAR
     Dosage: CONTINUOUS DELIVERY
     Route: 015
     Dates: start: 20080905, end: 20081125
  2. MIRENA [Suspect]
     Dosage: CONTINUOUS DELIVERY
     Route: 015
     Dates: start: 20081217, end: 20090308

REACTIONS (1)
  - INTRA-UTERINE CONTRACEPTIVE DEVICE EXPELLED [None]
